FAERS Safety Report 15826970 (Version 2)
Quarter: 2019Q1

REPORT INFORMATION
  Report Type: Spontaneous
  Country: DE (occurrence: DE)
  Receive Date: 20190115
  Receipt Date: 20190121
  Transmission Date: 20190417
  Serious: Yes (Disabling, Other)
  Sender: FDA-Public Use
  Company Number: DE-SA-2019SA009665

PATIENT
  Age: 69 Year
  Sex: Male
  Weight: 72 kg

DRUGS (5)
  1. HYDROCORTISONE. [Suspect]
     Active Substance: HYDROCORTISONE
     Dosage: 10 MG, BID (INTAKE TWICE IN 2 YEARS FOR 3 DAYS EACH)
     Route: 048
  2. HYDROCORTISONE. [Suspect]
     Active Substance: HYDROCORTISONE
     Indication: SEASONAL ALLERGY
     Dosage: 100 MG, TOTAL (ONE TIME INTAKE)
     Route: 048
  3. TRIAMCINOLON E [Suspect]
     Active Substance: CHLOROXINE\TRIAMCINOLONE ACETONIDE
     Indication: SEASONAL ALLERGY
     Dosage: 40 MG, USED TWICE IN TWO YEARS
     Route: 030
  4. HYDROCORTISONE. [Suspect]
     Active Substance: HYDROCORTISONE
     Dosage: 20 MG, BID (INTAKE TWICE IN 2 YEARS FOR 3 DAYS EACH)
     Route: 048
  5. DEXAMETHASONE. [Suspect]
     Active Substance: DEXAMETHASONE
     Indication: SEASONAL ALLERGY

REACTIONS (4)
  - Visual impairment [Recovered/Resolved with Sequelae]
  - Retinal scar [Recovered/Resolved with Sequelae]
  - Retinal oedema [Recovered/Resolved with Sequelae]
  - Retinal scar [Recovered/Resolved with Sequelae]

NARRATIVE: CASE EVENT DATE: 1986
